FAERS Safety Report 15266403 (Version 1)
Quarter: 2018Q3

REPORT INFORMATION
  Report Type: Report from Study
  Country: DE (occurrence: DE)
  Receive Date: 20180810
  Receipt Date: 20180810
  Transmission Date: 20181010
  Serious: Yes (Other)
  Sender: FDA-Public Use
  Company Number: DE-TEVA-2018-DE-938730

PATIENT
  Age: 57 Year
  Sex: Male

DRUGS (17)
  1. PEGYLATED LIPOSOMAL IRINOTECAN [Suspect]
     Active Substance: IRINOTECAN HYDROCHLORIDE
     Indication: COLORECTAL CANCER METASTATIC
     Dosage: NOT REPORTED
     Route: 065
  2. AFLIBERCEPT [Suspect]
     Active Substance: AFLIBERCEPT
     Indication: COLORECTAL CANCER METASTATIC
     Dates: start: 20150922, end: 20150922
  3. CLOPIDOGREL [Concomitant]
     Active Substance: CLOPIDOGREL BISULFATE
  4. AFLIBERCEPT [Suspect]
     Active Substance: AFLIBERCEPT
     Dosage: NOT REPORTED
     Dates: start: 20151020, end: 20151020
  5. CALCIUM PHOSPHATE [Concomitant]
     Active Substance: CALCIUM PHOSPHATE
  6. ATROPINE SULFATE. [Concomitant]
     Active Substance: ATROPINE SULFATE
     Dates: start: 20150822, end: 20151201
  7. SIMVASTATIN. [Concomitant]
     Active Substance: SIMVASTATIN
  8. GRANISETRON [Concomitant]
     Active Substance: GRANISETRON
     Dates: start: 20150922
  9. 5?LFUOROURACIL [Suspect]
     Active Substance: FLUOROURACIL
     Dosage: NOT REPORTED
     Route: 065
     Dates: start: 20151020, end: 20151020
  10. PEGYLATED LIPOSOMAL IRINOTECAN [Suspect]
     Active Substance: IRINOTECAN HYDROCHLORIDE
     Indication: OFF LABEL USE
     Route: 065
     Dates: start: 20151020, end: 20151020
  11. LEUCOVORIN. [Suspect]
     Active Substance: LEUCOVORIN
     Indication: COLORECTAL CANCER METASTATIC
     Route: 065
     Dates: start: 20150922, end: 20150922
  12. LEUCOVORIN. [Suspect]
     Active Substance: LEUCOVORIN
     Route: 065
     Dates: start: 20151020, end: 20151020
  13. AMLODIPIN [Concomitant]
     Active Substance: AMLODIPINE BESYLATE
  14. 5?LFUOROURACIL [Suspect]
     Active Substance: FLUOROURACIL
     Indication: COLORECTAL CANCER METASTATIC
     Route: 065
     Dates: start: 20150922, end: 20150922
  15. PEGYLATED LIPOSOMAL IRINOTECAN [Suspect]
     Active Substance: IRINOTECAN HYDROCHLORIDE
     Route: 065
     Dates: start: 20150922, end: 20150922
  16. NOVAMINSULFON [Concomitant]
     Active Substance: METAMIZOLE
  17. ALIZAPRIDE HYDROCHLORIDE [Concomitant]
     Active Substance: ALIZAPRIDE HYDROCHLORIDE
     Dates: start: 20150922

REACTIONS (6)
  - Fatigue [Recovered/Resolved]
  - Dyspepsia [Recovered/Resolved]
  - Thrombocytopenia [Recovered/Resolved]
  - Overdose [Unknown]
  - Off label use [Unknown]
  - Inappropriate schedule of drug administration [Unknown]

NARRATIVE: CASE EVENT DATE: 20151020
